FAERS Safety Report 5064797-2 (Version None)
Quarter: 2006Q3

REPORT INFORMATION
  Report Type: 
  Country: None (occurrence: None)
  Receive Date: 20060728
  Receipt Date: 20060718
  Transmission Date: 20061208
  Serious: Yes (Other)
  Sender: FDA-Public Use
  Company Number: PHEH2006US09222

PATIENT
  Age: 88 Year
  Sex: Male

DRUGS (1)
  1. ZOMETA [Suspect]
     Indication: METASTASES TO BONE
     Dosage: ONCE PER MONTH
     Dates: end: 20051101

REACTIONS (5)
  - BONE DEBRIDEMENT [None]
  - BONE DISORDER [None]
  - INFECTION [None]
  - ORAL PAIN [None]
  - STOMATITIS [None]
